FAERS Safety Report 4789697-4 (Version None)
Quarter: 2005Q4

REPORT INFORMATION
  Report Type: 
  Country: None (occurrence: None)
  Receive Date: 20051004
  Receipt Date: 20051004
  Transmission Date: 20060501
  Serious: Yes (Life-Threatening)
  Sender: FDA-Public Use
  Company Number: None

PATIENT
  Age: 38 Year
  Sex: Male
  Weight: 79 kg

DRUGS (18)
  1. IMMUNE GLOBULIN INTRAVENOUS (HUMAN) [Suspect]
     Indication: TRANSPLANT REJECTION
     Dosage: 42 G IV
     Route: 042
     Dates: start: 20050316
  2. IMMUNE GLOBULIN INTRAVENOUS (HUMAN) [Suspect]
     Indication: TRANSPLANT REJECTION
     Dosage: 42 G IV
     Route: 042
     Dates: start: 20050318
  3. IMMUNE GLOBULIN INTRAVENOUS (HUMAN) [Suspect]
     Indication: TRANSPLANT REJECTION
     Dosage: 42 G IV
     Route: 042
     Dates: start: 20050321
  4. IMMUNE GLOBULIN INTRAVENOUS (HUMAN) [Suspect]
     Indication: TRANSPLANT REJECTION
     Dosage: 42 G IV
     Route: 042
     Dates: start: 20050323
  5. IMMUNE GLOBULIN INTRAVENOUS (HUMAN) [Suspect]
     Indication: TRANSPLANT REJECTION
     Dosage: 42 G IV
     Route: 042
     Dates: start: 20050326
  6. IMMUNE GLOBULIN INTRAVENOUS (HUMAN) [Suspect]
     Indication: TRANSPLANT REJECTION
     Dosage: 42 G IV
     Route: 042
     Dates: start: 20050327
  7. ASPIRIN [Concomitant]
  8. CALCIUM CARBONATE [Concomitant]
  9. DOCUSATE [Concomitant]
  10. FUROSEMIDE [Concomitant]
  11. LANSOPRAZOLE [Concomitant]
  12. MGO [Concomitant]
  13. MGS04 [Concomitant]
  14. METOPROLOL [Concomitant]
  15. PREDNISONE [Concomitant]
  16. POTASSIUM CHLORIDE [Concomitant]
  17. TACROLIMUS [Concomitant]
  18. CYCLOPHOSPHAMIDE [Concomitant]

REACTIONS (1)
  - BLOOD CREATININE INCREASED [None]
